FAERS Safety Report 11864610 (Version 1)
Quarter: 2015Q4

REPORT INFORMATION
  Report Type: Spontaneous
  Country: BR (occurrence: BR)
  Receive Date: 20151223
  Receipt Date: 20151223
  Transmission Date: 20160305
  Serious: Yes (Disabling, Other)
  Sender: FDA-Public Use
  Company Number: BR-ASTRAZENECA-2015SF27971

PATIENT
  Age: 59 Year
  Sex: Male
  Weight: 75 kg

DRUGS (6)
  1. BENICAR ANLO [Concomitant]
     Active Substance: AMLODIPINE BESYLATE\OLMESARTAN MEDOXOMIL
     Indication: BLOOD PRESSURE ABNORMAL
     Dosage: DAILY
     Route: 048
     Dates: start: 2012
  2. DIAMICRON [Concomitant]
     Active Substance: GLICLAZIDE
     Indication: DIABETES MELLITUS
     Route: 048
     Dates: start: 201510
  3. CLOPIN [Concomitant]
     Active Substance: CLOPIDOGREL BISULFATE
     Indication: CEREBROVASCULAR ACCIDENT
     Dosage: DAILY
     Route: 048
     Dates: start: 201510
  4. KOMBIGLYZE XR [Suspect]
     Active Substance: METFORMIN HYDROCHLORIDE\SAXAGLIPTIN HYDROCHLORIDE
     Indication: DIABETES MELLITUS
     Dosage: DAILY
     Route: 048
     Dates: start: 201510
  5. FORXIGA [Suspect]
     Active Substance: DAPAGLIFLOZIN
     Indication: DIABETES MELLITUS
     Dosage: DAILY
     Route: 048
     Dates: start: 201504, end: 201510
  6. ASPIRIN. [Concomitant]
     Active Substance: ASPIRIN
     Indication: CEREBROVASCULAR ACCIDENT
     Dosage: DAILY
     Route: 048
     Dates: start: 201510

REACTIONS (5)
  - Weight decreased [Not Recovered/Not Resolved]
  - Arrhythmia [Recovered/Resolved]
  - Aphasia [Recovering/Resolving]
  - Ischaemic stroke [Recovered/Resolved with Sequelae]
  - Hyperglycaemia [Recovered/Resolved]

NARRATIVE: CASE EVENT DATE: 2015
